FAERS Safety Report 4898304-1 (Version None)
Quarter: 2006Q1

REPORT INFORMATION
  Report Type: 
  Country: None (occurrence: None)
  Receive Date: 20060106
  Receipt Date: 20050517
  Transmission Date: 20060701
  Serious: Yes (Other)
  Sender: FDA-Public Use
  Company Number: HQWYE912524MAY05

PATIENT
  Age: 28 Year
  Sex: Male
  Weight: 95.34 kg

DRUGS (1)
  1. PRIMATENE MIST [Suspect]
     Indication: ASTHMA
     Dosage: UNKNOWN DOSE ONCE, INHALATION
     Route: 055
     Dates: start: 20050513, end: 20050513

REACTIONS (4)
  - ACCIDENTAL OVERDOSE [None]
  - FEELING JITTERY [None]
  - NERVOUSNESS [None]
  - ORAL ADMINISTRATION COMPLICATION [None]
